FAERS Safety Report 9470260 (Version 2)
Quarter: 2013Q3

REPORT INFORMATION
  Report Type: Spontaneous
  Country: US (occurrence: US)
  Receive Date: 20130822
  Receipt Date: 20130822
  Transmission Date: 20140515
  Serious: Yes (Other)
  Sender: FDA-Public Use
  Company Number: US-SANOFI-AVENTIS-2013SA052034

PATIENT
  Age: 70 Year
  Sex: Female
  Weight: 104.32 kg

DRUGS (13)
  1. MULTAQ [Suspect]
     Indication: ATRIAL FIBRILLATION
     Route: 048
     Dates: start: 20130409, end: 20130516
  2. MULTAQ [Suspect]
     Indication: ATRIAL FIBRILLATION
     Route: 048
     Dates: start: 20130409, end: 20130516
  3. FUROSEMIDE [Concomitant]
  4. CRESTOR [Concomitant]
  5. AVALIDE [Concomitant]
     Dosage: DOSE- 300-25 MG
  6. TIMOLOL [Concomitant]
  7. GEMFIBROZIL [Concomitant]
  8. GLIMEPIRIDE [Concomitant]
  9. XARELTO [Concomitant]
  10. TRAVATAN [Concomitant]
  11. HYDROCHLOROTHIAZIDE [Concomitant]
  12. METFORMIN [Concomitant]
  13. DILTIAZEM [Concomitant]

REACTIONS (3)
  - Atrial fibrillation [Not Recovered/Not Resolved]
  - Drug ineffective [Not Recovered/Not Resolved]
  - Weight decreased [Unknown]
